FAERS Safety Report 8013282-4 (Version None)
Quarter: 2011Q4

REPORT INFORMATION
  Report Type: 
  Country: None (occurrence: None)
  Receive Date: 20111223
  Receipt Date: 20111215
  Transmission Date: 20120403
  Serious: Yes (Hospitalization)
  Sender: FDA-Public Use
  Company Number: ALK_02187_2011

PATIENT
  Age: 20 Year
  Sex: Male

DRUGS (1)
  1. VIVITROL [Suspect]
     Indication: DRUG DEPENDENCE
     Dosage: INTRAMUSCULAR
     Route: 030
     Dates: start: 20111201

REACTIONS (4)
  - DIARRHOEA [None]
  - VOMITING [None]
  - PSYCHOTIC DISORDER [None]
  - BLOOD CREATININE INCREASED [None]
